FAERS Safety Report 9311106 (Version 1)
Quarter: 2013Q2

REPORT INFORMATION
  Report Type: Spontaneous
  Country: US (occurrence: US)
  Receive Date: 20130528
  Receipt Date: 20130528
  Transmission Date: 20140414
  Serious: Yes (Life-Threatening, Hospitalization)
  Sender: FDA-Public Use
  Company Number: US-PFIZER INC-2011153665

PATIENT
  Age: 59 Year
  Sex: Male
  Weight: 61.22 kg

DRUGS (11)
  1. CHANTIX [Suspect]
     Indication: SMOKING CESSATION THERAPY
     Dosage: 0.5 MG, UNK
     Dates: start: 201101, end: 2011
  2. CHANTIX [Suspect]
     Dosage: 0.5 MG, UNK
     Dates: start: 201106, end: 201106
  3. OLANZAPINE [Concomitant]
     Indication: MENTAL DISORDER
     Dosage: 5 MG, DAILY
  4. MIRTAZAPINE [Concomitant]
     Indication: MENTAL DISORDER
     Dosage: 45 MG, DAILY
  5. CARVEDILOL [Concomitant]
     Indication: CARDIAC DISORDER
     Dosage: 3.125 MG, DAILY
  6. LISINOPRIL [Concomitant]
     Indication: CARDIAC DISORDER
     Dosage: 2.5 MG, DAILY
  7. LIOTHYRONINE SODIUM [Concomitant]
     Indication: CARDIAC DISORDER
     Dosage: 112 UG, DAILY
  8. WARFARIN SODIUM [Concomitant]
     Indication: CARDIAC DISORDER
     Dosage: 7.5 MG, DAILY
  9. ATORVASTATIN CALCIUM [Concomitant]
     Indication: CARDIAC DISORDER
     Dosage: 20 MG, DAILY
  10. DIGOXIN [Concomitant]
     Indication: CARDIAC DISORDER
     Dosage: 0.125 MG, DAILY
  11. MECLIZINE HYDROCHLORIDE [Concomitant]
     Dosage: 25 MG, DAILY

REACTIONS (4)
  - Arrhythmia [Unknown]
  - Tachycardia [Unknown]
  - Influenza [Unknown]
  - Abnormal behaviour [Unknown]
